FAERS Safety Report 9067832 (Version 1)
Quarter: 2013Q1

REPORT INFORMATION
  Report Type: Report from Study
  Country: GB (occurrence: GB)
  Receive Date: 20130215
  Receipt Date: 20130215
  Transmission Date: 20140127
  Serious: Yes (Other)
  Sender: FDA-Public Use
  Company Number: GB-009507513-1302GBR005249

PATIENT
  Age: 41 Year
  Sex: Male

DRUGS (3)
  1. RIBAVIRIN [Suspect]
     Indication: HEPATITIS C
  2. PEGINTERFERON ALFA-2B [Suspect]
     Indication: HEPATITIS C
  3. TELAPREVIR [Suspect]
     Indication: HEPATITIS C

REACTIONS (2)
  - Rash [Not Recovered/Not Resolved]
  - Nausea [Not Recovered/Not Resolved]
